FAERS Safety Report 21614631 (Version 1)
Quarter: 2022Q4

REPORT INFORMATION
  Report Type: Spontaneous
  Country: US (occurrence: US)
  Receive Date: 20221118
  Receipt Date: 20221118
  Transmission Date: 20230113
  Serious: No
  Sender: FDA-Public Use
  Company Number: MIQ-10032022-169(V1)

PATIENT
  Age: 65 Year
  Sex: Male

DRUGS (1)
  1. PEMFEXY [Suspect]
     Active Substance: PEMETREXED MONOHYDRATE
     Indication: Product used for unknown indication
     Dosage: 700 MG
     Route: 042
     Dates: start: 20221003, end: 20221003

REACTIONS (2)
  - Product preparation error [Unknown]
  - Product administration error [Unknown]

NARRATIVE: CASE EVENT DATE: 20221003
